FAERS Safety Report 14452171 (Version 4)
Quarter: 2021Q3

REPORT INFORMATION
  Report Type: Spontaneous
  Country: DE (occurrence: DE)
  Receive Date: 20180129
  Receipt Date: 20210816
  Transmission Date: 20211014
  Serious: Yes (Other)
  Sender: FDA-Public Use
  Company Number: DE-AUROBINDO-AUR-APL-2018-003610

PATIENT
  Age: 79 Year
  Sex: Female

DRUGS (19)
  1. CIPROFLOXACIN. [Concomitant]
     Active Substance: CIPROFLOXACIN
     Dosage: 1000 MILLIGRAM, ONCE A DAY
     Route: 048
     Dates: start: 20170808
  2. AMOXICLAV [Concomitant]
     Active Substance: AMOXICILLIN\CLAVULANATE POTASSIUM
     Indication: ANTIBIOTIC PROPHYLAXIS
     Dosage: UNK
     Route: 065
  3. QUETIAPINE. [Suspect]
     Active Substance: QUETIAPINE
     Indication: PRODUCT USED FOR UNKNOWN INDICATION
     Dosage: UNK
     Route: 065
  4. PARACETAMOL [Concomitant]
     Active Substance: ACETAMINOPHEN
     Indication: PRODUCT USED FOR UNKNOWN INDICATION
     Dosage: 500 MILLIGRAM, 3 TIMES A DAY, DAILY DOSE: 500 MG MILLIGRAM(S) EVERY 8 HOUR
     Route: 065
  5. CIPRO [Suspect]
     Active Substance: CIPROFLOXACIN HYDROCHLORIDE
     Indication: ANTIBIOTIC PROPHYLAXIS
     Dosage: 1000 MILLIGRAM, ONCE A DAY, HIGH DOSAGE, 1?0?1
     Route: 048
     Dates: start: 20170808, end: 20170829
  6. PIPERACILLIN. [Concomitant]
     Active Substance: PIPERACILLIN SODIUM
     Indication: ANTIBIOTIC PROPHYLAXIS
     Dosage: UNK
     Route: 065
  7. CIPRO [Suspect]
     Active Substance: CIPROFLOXACIN HYDROCHLORIDE
     Dosage: 500 MILLIGRAM, ONCE A DAY, DAILY DOSE: 1000 MG MILLIGRAM(S) EVERY DAY
     Route: 048
     Dates: start: 20170808, end: 20170829
  8. PARACETAMOL [Concomitant]
     Active Substance: ACETAMINOPHEN
     Dosage: 20 MILLIGRAM, ONCE A DAY
     Route: 065
  9. AMPICILLIN [Concomitant]
     Active Substance: AMPICILLIN
     Indication: ANTIBIOTIC PROPHYLAXIS
     Dosage: UNK
     Route: 065
  10. CIPROFLOXACIN. [Concomitant]
     Active Substance: CIPROFLOXACIN
     Dosage: 1000 MILLIGRAM, ONCE A DAY
     Route: 048
     Dates: start: 20170829
  11. PANTOPRAZOL [Concomitant]
     Active Substance: PANTOPRAZOLE SODIUM
     Indication: PRODUCT USED FOR UNKNOWN INDICATION
     Dosage: 20 MILLIGRAM, ONCE A DAY, DAILY DOSE: 20 MG MILLIGRAM(S) EVERY 24 HOUR
     Route: 065
  12. CIPROFLOXACIN. [Concomitant]
     Active Substance: CIPROFLOXACIN
     Indication: PRODUCT USED FOR UNKNOWN INDICATION
     Dosage: 500 MILLIGRAM, TWO TIMES A DAY, DAILY DOSE: 500 MG MILLIGRAM(S) EVERY 12 HOUR
     Route: 065
     Dates: start: 20170913
  13. STALEVO [Concomitant]
     Active Substance: CARBIDOPA\ENTACAPONE\LEVODOPA
     Indication: PRODUCT USED FOR UNKNOWN INDICATION
     Dosage: 75 MILLIGRAM, 75 MG, 7:30?11:00?14:00?17:00?22:00
     Route: 065
  14. CIPROFLOXACIN. [Concomitant]
     Active Substance: CIPROFLOXACIN
     Dosage: 500 MILLIGRAM, ONCE A DAY
     Route: 048
     Dates: start: 20170808, end: 20170829
  15. SIFROL [Suspect]
     Active Substance: PRAMIPEXOLE
     Indication: PRODUCT USED FOR UNKNOWN INDICATION
     Dosage: 52 MILLIGRAM, 52 MG, 19:30
     Route: 065
  16. CEFUROXIM [Concomitant]
     Active Substance: CEFUROXIME
     Indication: ANTIBIOTIC PROPHYLAXIS
     Dosage: UNK
     Route: 065
  17. PIPERACILLIN AND TAZOBACTAM [Concomitant]
     Active Substance: PIPERACILLIN SODIUM\TAZOBACTAM SODIUM
     Indication: ANTIBIOTIC PROPHYLAXIS
     Dosage: UNK
     Route: 065
  18. STALEVO [Concomitant]
     Active Substance: CARBIDOPA\ENTACAPONE\LEVODOPA
     Dosage: 100 MG, 24:00
     Route: 065
  19. ACETYLSALICYLIC ACID [Concomitant]
     Active Substance: ASPIRIN
     Indication: PRODUCT USED FOR UNKNOWN INDICATION
     Dosage: 100 MILLIGRAM, ONCE A DAY, DAILY DOSE: 100 MG MILLIGRAM(S) EVERY 24 HOUR
     Route: 065

REACTIONS (7)
  - Restlessness [Recovering/Resolving]
  - Psychomotor hyperactivity [Unknown]
  - Asthenia [Unknown]
  - Circulatory collapse [Unknown]
  - Delirium [Recovering/Resolving]
  - Hallucination [Unknown]
  - Confusional state [Recovering/Resolving]

NARRATIVE: CASE EVENT DATE: 20170101
